FAERS Safety Report 8836193 (Version 1)
Quarter: 2012Q4

REPORT INFORMATION
  Report Type: 
  Country: CA (occurrence: CA)
  Receive Date: 20121011
  Receipt Date: 20121011
  Transmission Date: 20130627
  Serious: Yes (Other)
  Sender: FDA-Public Use
  Company Number: CA-BAYER-2012-102929

PATIENT

DRUGS (2)
  1. BETASERON [Suspect]
     Dosage: UNK
  2. TYSABRI [Suspect]
     Dosage: UNK
     Dates: end: 201207

REACTIONS (4)
  - Multiple sclerosis [None]
  - Myelitis [None]
  - JC virus test positive [None]
  - Progressive multifocal leukoencephalopathy [None]
